FAERS Safety Report 8010215-1 (Version None)
Quarter: 2011Q4

REPORT INFORMATION
  Report Type: 
  Country: None (occurrence: None)
  Receive Date: 20111221
  Receipt Date: 20111215
  Transmission Date: 20120403
  Serious: Yes (Hospitalization, Other)
  Sender: FDA-Public Use
  Company Number: 2011SP046144

PATIENT
  Age: 37 Year
  Sex: Male
  Weight: 93 kg

DRUGS (3)
  1. MIRTAZAPINE [Suspect]
     Indication: PRODUCT USED FOR UNKNOWN INDICATION
     Dosage: 230 MG
  2. BACLOFEN [Suspect]
     Indication: MULTIPLE SCLEROSIS
     Dosage: 1850 MG;PO, 2500 MG
     Route: 048
     Dates: start: 20090101
  3. ESCITALOPRAM [Suspect]
     Indication: PRODUCT USED FOR UNKNOWN INDICATION
     Dosage: 160 MG

REACTIONS (13)
  - RESPIRATORY ACIDOSIS [None]
  - SNORING [None]
  - SUICIDE ATTEMPT [None]
  - CONTINUOUS HAEMODIAFILTRATION [None]
  - SINUS BRADYCARDIA [None]
  - CONVULSION [None]
  - MULTIPLE DRUG OVERDOSE [None]
  - MUSCLE SPASMS [None]
  - COMA [None]
  - MUTISM [None]
  - AMNESIA [None]
  - BLOOD LACTIC ACID INCREASED [None]
  - MIOSIS [None]
